APPROVED DRUG PRODUCT: PROTRIPTYLINE HYDROCHLORIDE
Active Ingredient: PROTRIPTYLINE HYDROCHLORIDE
Strength: 10MG
Dosage Form/Route: TABLET;ORAL
Application: A202220 | Product #002 | TE Code: AB
Applicant: EPIC PHARMA LLC
Approved: Nov 19, 2012 | RLD: No | RS: Yes | Type: RX